FAERS Safety Report 8823808 (Version 1)
Quarter: 2012Q4

REPORT INFORMATION
  Report Type: Report from Study
  Country: US (occurrence: US)
  Receive Date: 20121003
  Receipt Date: 20121003
  Transmission Date: 20130627
  Serious: Yes (Other)
  Sender: FDA-Public Use
  Company Number: US-AMGEN-USANI2012061784

PATIENT
  Age: 0 Year
  Sex: Female

DRUGS (12)
  1. ETANERCEPT [Suspect]
     Dosage: 50 mg, UNK
     Route: 064
     Dates: start: 20081027, end: 20090722
  2. ETANERCEPT [Suspect]
     Dosage: 50 mg, UNK
     Route: 064
     Dates: start: 20081027, end: 20090722
  3. PRENATAL VITAMINS [Concomitant]
     Dosage: UNK UNK, qd
     Route: 064
     Dates: start: 20081027, end: 20090727
  4. VITAMIN C [Concomitant]
     Dosage: 1000 mg, UNK
     Route: 064
     Dates: start: 20081027, end: 20090101
  5. IRON [Concomitant]
     Dosage: 27 mg, UNK
     Route: 064
     Dates: start: 20090318, end: 20090630
  6. LIDODERM [Concomitant]
     Dosage: UNK UNK, qwk
     Route: 064
     Dates: start: 20090303, end: 20090318
  7. TYLENOL [Concomitant]
     Dosage: 1300 mg, qwk
     Route: 064
     Dates: start: 20090308, end: 20090702
  8. PHENERGAN [Concomitant]
     Dosage: UNK UNK, qd
     Route: 064
     Dates: start: 20090725, end: 20090725
  9. ZOFRAN [Concomitant]
     Dosage: UNK UNK, qd
     Route: 064
     Dates: start: 20090725, end: 20120925
  10. ROBITUSSIN [Concomitant]
     Dosage: UNK
     Route: 064
     Dates: start: 20090622, end: 20090714
  11. MYLANTA [Concomitant]
     Dosage: UNK UNK, qd
     Route: 064
     Dates: start: 20090727, end: 20090727
  12. TUMS [Concomitant]
     Dosage: UNK UNK, qd
     Route: 064
     Dates: start: 20090720, end: 20090727

REACTIONS (1)
  - Sebaceous naevus [Unknown]
